FAERS Safety Report 8263524-5 (Version None)
Quarter: 2012Q1

REPORT INFORMATION
  Report Type: 
  Country: None (occurrence: None)
  Receive Date: 20120327
  Receipt Date: 20090127
  Transmission Date: 20120608
  Serious: Yes (Hospitalization)
  Sender: FDA-Public Use
  Company Number: PHEH2009US00838

PATIENT
  Age: 78 Year
  Sex: Female

DRUGS (19)
  1. COREG [Concomitant]
  2. COZAAR [Concomitant]
  3. LASIX [Concomitant]
  4. LANTUS [Concomitant]
  5. TRICOR [Concomitant]
  6. ISORDIL [Concomitant]
  7. SYNTHROID [Concomitant]
  8. ATENOLOL [Concomitant]
  9. GLEEVEC [Suspect]
     Indication: CHRONIC MYELOID LEUKAEMIA
     Dosage: 400 MG, QD, ORAL
     Route: 048
     Dates: start: 20031201
  10. CALCITROL (CALCIUM CARBONATE, ERGOCALCIFEROL, RETINOL) [Concomitant]
  11. CALCIUM CARBONATE [Concomitant]
  12. AMIODARONE HCL [Concomitant]
  13. CRESTOR [Concomitant]
  14. NOVOLOG [Concomitant]
  15. PLAVIX [Concomitant]
  16. LANOXIN [Concomitant]
  17. FERROUS SULFATE TAB [Concomitant]
  18. MULTI-VITAMINS [Concomitant]
  19. CYMBALTA [Concomitant]

REACTIONS (7)
  - MYOCARDIAL INFARCTION [None]
  - CHEST PAIN [None]
  - ELECTROCARDIOGRAM ABNORMAL [None]
  - RESPIRATORY RATE DECREASED [None]
  - ARRHYTHMIA [None]
  - CHEST X-RAY ABNORMAL [None]
  - TROPONIN I INCREASED [None]
